FAERS Safety Report 5062438-1 (Version None)
Quarter: 2006Q3

REPORT INFORMATION
  Report Type: 
  Country: None (occurrence: None)
  Receive Date: 20060721
  Receipt Date: 20060706
  Transmission Date: 20061208
  Serious: Yes (Hospitalization, Other)
  Sender: FDA-Public Use
  Company Number: NL200605000100

PATIENT
  Age: 49 Year
  Sex: Female
  Weight: 75 kg

DRUGS (5)
  1. HUMATROPE [Suspect]
     Indication: GROWTH HORMONE DEFICIENCY
     Dosage: 0.4 MG SUBCUTANEOUS
     Route: 058
     Dates: start: 20020925, end: 20051123
  2. HYDROCORTISONE [Concomitant]
  3. MARVELON(DESOGESTREL, ETHINYLESTRADIOL) [Concomitant]
  4. HYDROCHLOROTHIAZIDE [Concomitant]
  5. FELODIPINE [Concomitant]

REACTIONS (1)
  - RECTOSIGMOID CANCER [None]
